FAERS Safety Report 9866542 (Version 2)
Quarter: 2014Q2

REPORT INFORMATION
  Report Type: Spontaneous
  Country: US (occurrence: US)
  Receive Date: 20140204
  Receipt Date: 20140421
  Transmission Date: 20141212
  Serious: Yes (Other)
  Sender: FDA-Public Use
  Company Number: US-BIOGENIDEC-2014BI009528

PATIENT
  Sex: Male

DRUGS (8)
  1. TECFIDERA [Suspect]
     Indication: MULTIPLE SCLEROSIS
     Route: 048
  2. TECFIDERA [Suspect]
     Indication: MULTIPLE SCLEROSIS
     Route: 048
  3. ASPIRIN [Concomitant]
     Indication: DIARRHOEA
  4. ASPIRIN [Concomitant]
     Indication: NAUSEA
  5. ASPIRIN [Concomitant]
     Indication: VOMITING
  6. ASPIRIN [Concomitant]
     Indication: PYREXIA
  7. ASPIRIN [Concomitant]
     Indication: PRURITUS
  8. ASPIRIN [Concomitant]
     Indication: FLUSHING

REACTIONS (1)
  - Deep vein thrombosis [Recovered/Resolved]
